FAERS Safety Report 12763680 (Version 1)
Quarter: 2016Q3

REPORT INFORMATION
  Report Type: Spontaneous
  Country: PT (occurrence: PT)
  Receive Date: 20160920
  Receipt Date: 20160920
  Transmission Date: 20161109
  Serious: Yes (Other)
  Sender: FDA-Public Use
  Company Number: PT-PFIZER INC-3259263

PATIENT
  Age: 83 Year
  Sex: Male
  Weight: 70 kg

DRUGS (13)
  1. CARBOPLATIN. [Concomitant]
     Active Substance: CARBOPLATIN
     Indication: SQUAMOUS CELL CARCINOMA
     Dosage: 160 MG, CYCLIC (WHEN 110MG OF PACLITAXEL WERE ADMINISTERED)
     Route: 042
  2. PALONOSETRON [Concomitant]
     Active Substance: PALONOSETRON
     Indication: PREMEDICATION
     Dosage: UNK
  3. PACLITAXEL AUROVITAS [Suspect]
     Active Substance: PACLITAXEL
     Indication: SQUAMOUS CELL CARCINOMA
     Dosage: 110 MG, CYCLIC (7 CYCLES) DILUTED IN 250ML SALINE SOLUTION 1H INFUSION
     Route: 041
     Dates: start: 20151222
  4. PERMIXON [Concomitant]
     Active Substance: SAW PALMETTO
     Indication: BENIGN PROSTATIC HYPERPLASIA
     Dosage: UNK
     Route: 048
  5. PACLITAXEL HOSPIRA [Suspect]
     Active Substance: PACLITAXEL
     Indication: SQUAMOUS CELL CARCINOMA
     Dosage: 110 MG, CYCLIC (7 CYCLES) DILUTED IN 250ML OF SALINE SOLUTION 1H INFUSION
     Route: 041
     Dates: start: 20151222
  6. PACLITAXEL HOSPIRA [Suspect]
     Active Substance: PACLITAXEL
     Dosage: 88 MG, CYCLIC  (6 CYCLES) DILUTED IN 250ML OF SALINE SOLUTION 1H INFUSION
     Route: 041
     Dates: end: 20160329
  7. HYDROCORTISONE. [Concomitant]
     Active Substance: HYDROCORTISONE
     Indication: PREMEDICATION
     Dosage: UNK
  8. RANITIDINE. [Concomitant]
     Active Substance: RANITIDINE
     Indication: PREMEDICATION
     Dosage: UNK
  9. PALEXIA [Concomitant]
     Active Substance: TAPENTADOL HYDROCHLORIDE
     Dosage: UNK
     Route: 042
     Dates: start: 20160224
  10. CARBOPLATIN. [Concomitant]
     Active Substance: CARBOPLATIN
     Dosage: 128 MG, CYCLIC (WHEN 88 MG OF PACLITAXEL WERE ADMINISTERED)
     Route: 042
  11. DAFLON [Concomitant]
     Active Substance: DIOSMIN\HESPERIDIN
     Dosage: 500 UNK, UNK
     Route: 048
  12. CLEMASTINE [Concomitant]
     Active Substance: CLEMASTINE
     Indication: PREMEDICATION
     Dosage: UNK
  13. PACLITAXEL AUROVITAS [Suspect]
     Active Substance: PACLITAXEL
     Dosage: 88 MG, CYCLIC (6 CYCLES) DILUTED IN 250ML SALINE SOLUTION 1H INFUSION
     Route: 041
     Dates: end: 20160329

REACTIONS (4)
  - Dysphonia [Unknown]
  - Swelling [Recovered/Resolved]
  - Feeling hot [Recovered/Resolved]
  - Throat irritation [Recovering/Resolving]

NARRATIVE: CASE EVENT DATE: 20151222
